FAERS Safety Report 4607119-0 (Version None)
Quarter: 2005Q1

REPORT INFORMATION
  Report Type: 
  Country: None (occurrence: None)
  Receive Date: 20050310
  Receipt Date: 20050226
  Transmission Date: 20050727
  Serious: Yes (Other)
  Sender: FDA-Public Use
  Company Number: 200510857BCC

PATIENT
  Age: 12 Year
  Sex: Female
  Weight: 47.6277 kg

DRUGS (2)
  1. RID [Suspect]
     Indication: LICE INFESTATION
     Dosage: TOPICAL
     Route: 061
  2. NIX CREME TINSE (PERMETHRIN) [Suspect]

REACTIONS (1)
  - EYE SWELLING [None]
